FAERS Safety Report 8324746-8 (Version None)
Quarter: 2012Q2

REPORT INFORMATION
  Report Type: 
  Country: None (occurrence: None)
  Receive Date: 20120501
  Receipt Date: 20120423
  Transmission Date: 20120825
  Serious: Yes (Hospitalization)
  Sender: FDA-Public Use
  Company Number: BR-ASTRAZENECA-2012SE27116

PATIENT
  Age: 71 Year
  Sex: Male
  Weight: 79 kg

DRUGS (5)
  1. METFORMIN HYDROCHLORIDE [Concomitant]
     Route: 048
     Dates: start: 19960101
  2. JANUVIA [Concomitant]
     Route: 048
  3. AMARYL [Concomitant]
     Route: 048
  4. ATACAND HCT [Suspect]
     Indication: HYPERTENSION
     Dosage: 16/12.5 MG BID
     Route: 048
     Dates: start: 20100101, end: 20120408
  5. PLAVIX [Concomitant]
     Route: 048
     Dates: start: 20060101, end: 20120408

REACTIONS (3)
  - CYANOSIS [None]
  - STENT MALFUNCTION [None]
  - FATIGUE [None]
